FAERS Safety Report 5198856-0 (Version None)
Quarter: 2006Q4

REPORT INFORMATION
  Report Type: 
  Country: None (occurrence: None)
  Receive Date: 20060926
  Receipt Date: 20050907
  Transmission Date: 20070319
  Serious: Yes (Hospitalization)
  Sender: FDA-Public Use
  Company Number: 2005BH001558

PATIENT
  Age: 64 Year
  Sex: Female

DRUGS (3)
  1. ATIVAN [Suspect]
     Indication: BIPOLAR DISORDER
     Dosage: 0.5 MG; EVERY DAY
     Dates: start: 20050602, end: 20050602
  2. CLOZAPINE [Suspect]
     Indication: BIPOLAR DISORDER
     Dosage: 12.5 MG; EVERY DAY; PO
     Route: 048
     Dates: start: 20040201, end: 20050603
  3. TRAZODONE HCL [Suspect]
     Indication: INSOMNIA
     Dosage: 50 MG; EVERY DAY; PO
     Route: 048
     Dates: start: 20040601

REACTIONS (2)
  - BRADYCARDIA [None]
  - SOMNOLENCE [None]
